FAERS Safety Report 7958796-8 (Version None)
Quarter: 2011Q4

REPORT INFORMATION
  Report Type: 
  Country: None (occurrence: None)
  Receive Date: 20111206
  Receipt Date: 20111124
  Transmission Date: 20120403
  Serious: Yes (Other)
  Sender: FDA-Public Use
  Company Number: JP-UCBSA-036453

PATIENT
  Age: 49 Year
  Sex: Female

DRUGS (13)
  1. CERTOLIZUMAB PEGOL [Suspect]
     Route: 058
     Dates: start: 20090205, end: 20090101
  2. SODIUM GUALENATE HYDRTATE_L-GLUTAMINE [Concomitant]
     Dosage: DAILY DOSE:2 G
     Dates: start: 20100219
  3. CERTOLIZUMAB PEGOL [Suspect]
     Route: 058
     Dates: start: 20090101, end: 20090804
  4. TACROLIMUS [Concomitant]
     Dosage: DAILY DOSE:2 MG
     Dates: start: 20100819, end: 20110907
  5. KETOPROFEN [Concomitant]
     Dosage: DAILY DOSE: ADEQUATE DOSE AS NEEDED
     Dates: start: 20100512
  6. FUROSEMIDE [Concomitant]
     Dosage: DAILY DOSE:20 MG
     Dates: start: 20100819, end: 20110907
  7. ISOTONIC SODIUM CHLORIDE SOLUTION [Concomitant]
  8. CERTOLIZUMAB PEGOL [Suspect]
     Indication: RHEUMATOID ARTHRITIS
     Dosage: IN STUDY 275-08-003, SUBJECT RECEIVED- 400 MG/2 WEEKS AND 200 MG/2 WEEKS
     Route: 058
     Dates: start: 20090820, end: 20110624
  9. PREDNISOLONE [Concomitant]
     Dosage: DAILY DOSE: 6 MG
     Dates: start: 20110217
  10. FERRIC PYROPHOSPHATE [Concomitant]
     Dosage: DAILY DOSE:15ML; SOLUBLE
     Dates: start: 20100625
  11. LOXOPROFEN SODIUM HYDRATE [Concomitant]
     Dosage: DAILY DOSE : 180 MG
     Dates: start: 20100709
  12. LAFUTIDINE [Concomitant]
     Dosage: DAILY DOSE: 10MG
     Dates: start: 20110319
  13. FERRIC OXIDE, SACCHARATED [Concomitant]

REACTIONS (1)
  - BREAST CANCER [None]
